FAERS Safety Report 15813299 (Version 1)
Quarter: 2019Q1

REPORT INFORMATION
  Report Type: Spontaneous
  Country: US (occurrence: US)
  Receive Date: 20190111
  Receipt Date: 20190111
  Transmission Date: 20190417
  Serious: Yes (Life-Threatening, Hospitalization)
  Sender: FDA-Public Use
  Company Number: None

PATIENT
  Age: 86 Year
  Sex: Female

DRUGS (3)
  1. CELECOXIB. [Suspect]
     Active Substance: CELECOXIB
     Indication: RHEUMATOID ARTHRITIS
     Route: 048
  2. BUMEX [Concomitant]
     Active Substance: BUMETANIDE
  3. CELEBREX [Suspect]
     Active Substance: CELECOXIB
     Indication: RHEUMATOID ARTHRITIS
     Route: 048

REACTIONS (5)
  - Ulcer haemorrhage [None]
  - Intestinal obstruction [None]
  - Haematemesis [None]
  - Pulmonary thrombosis [None]
  - Atrial fibrillation [None]

NARRATIVE: CASE EVENT DATE: 20181124
